FAERS Safety Report 12109131 (Version 2)
Quarter: 2016Q1

REPORT INFORMATION
  Report Type: Spontaneous
  Country: ES (occurrence: ES)
  Receive Date: 20160224
  Receipt Date: 20160309
  Transmission Date: 20160526
  Serious: Yes (Hospitalization, Disabling)
  Sender: FDA-Public Use
  Company Number: PHHY2016ES023396

PATIENT
  Age: 75 Year
  Sex: Female

DRUGS (1)
  1. ZOMETA [Suspect]
     Active Substance: ZOLEDRONIC ACID
     Indication: PRODUCT USED FOR UNKNOWN INDICATION
     Dosage: 4 MG, UNK
     Route: 042
     Dates: start: 20151127, end: 20151127

REACTIONS (5)
  - Abasia [Unknown]
  - Axonal neuropathy [Recovering/Resolving]
  - Ataxia [Not Recovered/Not Resolved]
  - Coordination abnormal [Unknown]
  - Speech disorder [Unknown]

NARRATIVE: CASE EVENT DATE: 201511
